FAERS Safety Report 10064877 (Version 1)
Quarter: 2014Q2

REPORT INFORMATION
  Report Type: Spontaneous
  Country: US (occurrence: None)
  Receive Date: 20140404
  Receipt Date: 20140404
  Transmission Date: 20141212
  Serious: Yes (Hospitalization)
  Sender: FDA-Public Use
  Company Number: UTC-046003

PATIENT
  Age: 40 Year
  Sex: Female
  Weight: 60 kg

DRUGS (4)
  1. TYVASO [Suspect]
     Indication: PULMONARY ARTERIAL HYPERTENSION
     Dosage: 72 MCG 4 IN 1 D
     Dates: start: 20110914
  2. LETAIRIS (AMBRISSENTAN) (UNKNOWN) [Concomitant]
  3. ADCIRCA (TADALAFIL) (UNKNOWN) [Concomitant]
  4. WARFARIN (WARFARIN) (UNKNOWN) [Concomitant]

REACTIONS (1)
  - Abdominal discomfort [None]
